FAERS Safety Report 12587369 (Version 1)
Quarter: 2016Q3

REPORT INFORMATION
  Report Type: Spontaneous
  Country: US (occurrence: US)
  Receive Date: 20160725
  Receipt Date: 20160725
  Transmission Date: 20161109
  Serious: Yes (Hospitalization)
  Sender: FDA-Public Use
  Company Number: US-ASTRAZENECA-2012SE33899

PATIENT
  Age: 53 Year
  Sex: Male

DRUGS (6)
  1. CRESTOR [Suspect]
     Active Substance: ROSUVASTATIN CALCIUM
     Indication: BLOOD CHOLESTEROL ABNORMAL
     Route: 048
     Dates: start: 2003, end: 201307
  2. SIMVASTATIN. [Concomitant]
     Active Substance: SIMVASTATIN
  3. XANAX [Concomitant]
     Active Substance: ALPRAZOLAM
  4. BABY ASPIRIN [Concomitant]
     Active Substance: ASPIRIN
  5. LIPITOR [Concomitant]
     Active Substance: ATORVASTATIN CALCIUM
  6. CRESTOR [Suspect]
     Active Substance: ROSUVASTATIN CALCIUM
     Indication: BLOOD CHOLESTEROL ABNORMAL
     Route: 048

REACTIONS (17)
  - Chest pain [Unknown]
  - Thyroid mass [Unknown]
  - Atrial fibrillation [Unknown]
  - Feeling abnormal [Unknown]
  - Dyspnoea [Unknown]
  - Stress [Unknown]
  - Gastrointestinal disorder [Unknown]
  - Depression [Unknown]
  - Lactose intolerance [Unknown]
  - Weight decreased [Unknown]
  - Fatigue [Unknown]
  - Drug dose omission [Unknown]
  - Panic attack [Unknown]
  - Heat exhaustion [Unknown]
  - Calcinosis [Unknown]
  - Body height decreased [Unknown]
  - Intentional product misuse [Unknown]

NARRATIVE: CASE EVENT DATE: 2006
